FAERS Safety Report 4724703-4 (Version None)
Quarter: 2005Q3

REPORT INFORMATION
  Report Type: 
  Country: None (occurrence: None)
  Receive Date: 20050720
  Receipt Date: 20050720
  Transmission Date: 20060218
  Serious: Yes (Other)
  Sender: FDA-Public Use
  Company Number: None

PATIENT
  Age: 32 Year
  Sex: Female
  Weight: 67.1324 kg

DRUGS (2)
  1. ZOLOFT [Suspect]
     Indication: OBSESSIVE-COMPULSIVE DISORDER
     Dosage: 150     DAILY   ORAL
     Route: 048
  2. NEURONTIN [Suspect]
     Dosage: 300    TWICE DAILY    ORAL
     Route: 048

REACTIONS (10)
  - AGITATION [None]
  - CONDITION AGGRAVATED [None]
  - FAMILY STRESS [None]
  - FATIGUE [None]
  - FEELING ABNORMAL [None]
  - HEADACHE [None]
  - HYPERACUSIS [None]
  - IMPAIRED WORK ABILITY [None]
  - MOOD SWINGS [None]
  - SOMNOLENCE [None]
